FAERS Safety Report 9149534 (Version 1)
Quarter: 2013Q1

REPORT INFORMATION
  Report Type: Spontaneous
  Country: US (occurrence: None)
  Receive Date: 20130301
  Receipt Date: 20130301
  Transmission Date: 20140127
  Serious: Yes (Life-Threatening)
  Sender: FDA-Public Use
  Company Number: None

PATIENT
  Age: 38 Year
  Sex: Female
  Weight: 70.31 kg

DRUGS (2)
  1. LEVOFLOXACIN 500MG TABLETS WALGREENS [Suspect]
     Indication: INFLUENZA
     Dosage: 500 MG TABLET  ONCE DAILY
     Dates: start: 20130227, end: 20130228
  2. LEVOFLOXACIN 500MG TABLETS WALGREENS [Suspect]
     Indication: BRONCHITIS
     Dosage: 500 MG TABLET  ONCE DAILY
     Dates: start: 20130227, end: 20130228

REACTIONS (3)
  - Rash generalised [None]
  - Rash pruritic [None]
  - Scratch [None]
